FAERS Safety Report 13277159 (Version 2)
Quarter: 2017Q1

REPORT INFORMATION
  Report Type: Spontaneous
  Country: JP (occurrence: JP)
  Receive Date: 20170228
  Receipt Date: 20170301
  Transmission Date: 20170428
  Serious: No
  Sender: FDA-Public Use
  Company Number: PHJP2017JP005755

PATIENT
  Sex: Female

DRUGS (14)
  1. HALOPERIDOL. [Concomitant]
     Active Substance: HALOPERIDOL
     Dosage: 2 MG, UNK
     Route: 065
  2. LEVODOPA [Concomitant]
     Active Substance: LEVODOPA
     Dosage: 600 MG, UNK
     Route: 065
  3. ROTIGOTINE [Concomitant]
     Active Substance: ROTIGOTINE
     Indication: PRODUCT USED FOR UNKNOWN INDICATION
     Dosage: 9 MG, UNK
     Route: 065
  4. ZONISAMIDE. [Concomitant]
     Active Substance: ZONISAMIDE
     Indication: PRODUCT USED FOR UNKNOWN INDICATION
     Dosage: 50 MG, UNK
     Route: 065
  5. AMANTADINE [Suspect]
     Active Substance: AMANTADINE
     Dosage: 100 MG, UNK
     Route: 065
  6. PALIPERIDONE. [Concomitant]
     Active Substance: PALIPERIDONE
     Dosage: 6 MG, UNK
     Route: 065
  7. AMANTADINE [Suspect]
     Active Substance: AMANTADINE
     Indication: PRODUCT USED FOR UNKNOWN INDICATION
     Dosage: 50 MG, UNK
     Route: 065
  8. STALEVO [Concomitant]
     Active Substance: CARBIDOPA\ENTACAPONE\LEVODOPA
     Indication: PRODUCT USED FOR UNKNOWN INDICATION
     Dosage: 600 MG, UNK
     Route: 048
  9. LEVODOPA [Concomitant]
     Active Substance: LEVODOPA
     Indication: PRODUCT USED FOR UNKNOWN INDICATION
     Dosage: 300 MG, UNK
     Route: 065
  10. HALOPERIDOL. [Concomitant]
     Active Substance: HALOPERIDOL
     Indication: PRODUCT USED FOR UNKNOWN INDICATION
     Dosage: 6 MG, UNK
     Route: 065
  11. BIPERIDEN [Concomitant]
     Active Substance: BIPERIDEN
     Dosage: 6 MG, UNK
     Route: 065
  12. BLONANSERIN [Concomitant]
     Active Substance: BLONANSERIN
     Indication: PRODUCT USED FOR UNKNOWN INDICATION
     Dosage: 24 MG, UNK
     Route: 065
  13. BIPERIDEN [Concomitant]
     Active Substance: BIPERIDEN
     Indication: PRODUCT USED FOR UNKNOWN INDICATION
     Dosage: 3 MG, UNK
     Route: 065
  14. PALIPERIDONE. [Concomitant]
     Active Substance: PALIPERIDONE
     Indication: PRODUCT USED FOR UNKNOWN INDICATION
     Dosage: 3 MG, UNK
     Route: 065

REACTIONS (4)
  - Tremor [Unknown]
  - Gait disturbance [Unknown]
  - Balance disorder [Unknown]
  - Cogwheel rigidity [Recovering/Resolving]
